FAERS Safety Report 16064665 (Version 1)
Quarter: 2019Q1

REPORT INFORMATION
  Report Type: Spontaneous
  Country: US (occurrence: US)
  Receive Date: 20190312
  Receipt Date: 20190312
  Transmission Date: 20190418
  Serious: No
  Sender: FDA-Public Use
  Company Number: US-009507513-1903USA000676

PATIENT
  Age: 75 Year
  Sex: Female

DRUGS (3)
  1. TYLENOL ARTHRITIS PAIN [Concomitant]
     Active Substance: ACETAMINOPHEN
     Indication: ARTHRITIS
     Dosage: 650 MG TABLET -1 TABLET TAKEN BY MOUTH
  2. COZAAR [Suspect]
     Active Substance: LOSARTAN POTASSIUM
     Indication: HYPERTENSION
     Dosage: 50MG TABLET TAKEN BY MOUTH EVERY DAY USUALLY IN THE EVENING
     Route: 048
     Dates: start: 2014
  3. PREPARATION H RAPID RELIEF [Suspect]
     Active Substance: GLYCERIN\LIDOCAINE
     Dosage: UNK
     Dates: start: 20180925, end: 20180925

REACTIONS (5)
  - Gait disturbance [Not Recovered/Not Resolved]
  - Pruritus [Not Recovered/Not Resolved]
  - Psoriasis [Not Recovered/Not Resolved]
  - Anorectal discomfort [Recovering/Resolving]
  - Diarrhoea [Unknown]

NARRATIVE: CASE EVENT DATE: 2015
